FAERS Safety Report 8902679 (Version 2)
Quarter: 2012Q4

REPORT INFORMATION
  Report Type: 
  Country: JP (occurrence: JP)
  Receive Date: 20121112
  Receipt Date: 20121126
  Transmission Date: 20130627
  Serious: Yes (Death, Hospitalization, Other)
  Sender: FDA-Public Use
  Company Number: PHHY2012JP103728

PATIENT
  Age: 68 Year
  Sex: Female

DRUGS (3)
  1. CARBAMAZEPINE [Suspect]
     Indication: GRAND MAL CONVULSION
  2. PILSICAINIDE [Concomitant]
     Indication: ATRIAL FIBRILLATION
  3. FLUID/ELECTROLYTE REPLACEMENT THERAPY [Concomitant]

REACTIONS (23)
  - Shock [Fatal]
  - Blood pressure systolic decreased [Fatal]
  - Multi-organ failure [Fatal]
  - Adrenalitis [Fatal]
  - Adrenal insufficiency [Fatal]
  - Tubulointerstitial nephritis [Not Recovered/Not Resolved]
  - Renal impairment [Not Recovered/Not Resolved]
  - Urine output decreased [Unknown]
  - Haematuria [Unknown]
  - Proteinuria [Unknown]
  - Dizziness [Unknown]
  - Decreased appetite [Unknown]
  - Malaise [Unknown]
  - Kidney enlargement [Unknown]
  - Urinary tract infection [Unknown]
  - Device related infection [Unknown]
  - Atrial fibrillation [Unknown]
  - Heart rate decreased [Unknown]
  - Hypoglycaemia [Unknown]
  - Uraemic gastropathy [Unknown]
  - Blood pressure decreased [Unknown]
  - Anaemia [Unknown]
  - Body temperature decreased [Unknown]
